FAERS Safety Report 7155945-9 (Version None)
Quarter: 2010Q4

REPORT INFORMATION
  Report Type: 
  Country: None (occurrence: None)
  Receive Date: 20101214
  Receipt Date: 20100223
  Transmission Date: 20110411
  Serious: No
  Sender: FDA-Public Use
  Company Number: US-MYLANLABS-2010S1003187

PATIENT
  Age: 13 Year
  Sex: Male

DRUGS (3)
  1. FLUVOXAMINE MALEATE [Suspect]
     Route: 048
  2. GUANFACINE HYDROCHLORIDE [Suspect]
     Route: 048
  3. GUANFACINE HYDROCHLORIDE [Suspect]
     Route: 048

REACTIONS (3)
  - CONDITION AGGRAVATED [None]
  - DRUG INTERACTION [None]
  - SOMNOLENCE [None]
